FAERS Safety Report 8096939-9 (Version None)
Quarter: 2012Q1

REPORT INFORMATION
  Report Type: 
  Country: None (occurrence: None)
  Receive Date: 20120129
  Receipt Date: 20111108
  Transmission Date: 20120608
  Serious: No
  Sender: FDA-Public Use
  Company Number: US-ABBOTT-11P-163-0732373-00

PATIENT
  Age: 51 Year
  Sex: Female

DRUGS (8)
  1. LEXAPRO [Concomitant]
     Indication: DEPRESSION
     Dosage: 1 IN 1 DAY, 20 MG 1.5 TABS DAILY
  2. HYDROXYCHLOR [Concomitant]
     Indication: RHEUMATOID ARTHRITIS
     Dosage: 2 IN 1 DAY: TWICE A DAY WITH MEALS
  3. PERCOCET [Concomitant]
     Indication: PAIN
     Dosage: 10/325 MG AS REQUIRED
  4. PANTOPRAZOLE [Concomitant]
     Indication: GASTROOESOPHAGEAL REFLUX DISEASE
     Dosage: DAILY
  5. SOMA [Concomitant]
     Indication: PAIN
     Dosage: AS REQUIRED
  6. KLONOPIN [Concomitant]
     Indication: ANXIETY
     Dosage: 1 IN 1 DAY, AT BEDTIME
  7. MIRTAZAPINE [Concomitant]
     Indication: DEPRESSION
     Dosage: 1 IN 1 DAY, AT BEDTIME
  8. HUMIRA [Suspect]
     Indication: RHEUMATOID ARTHRITIS
     Dates: start: 20110124, end: 20110614

REACTIONS (7)
  - HEPATITIS B ANTIBODY POSITIVE [None]
  - HEPATITIS C [None]
  - FATIGUE [None]
  - INSOMNIA [None]
  - HEPATITIS A ANTIBODY POSITIVE [None]
  - HEPATITIS B [None]
  - OEDEMA PERIPHERAL [None]
